FAERS Safety Report 26195328 (Version 1)
Quarter: 2025Q4

REPORT INFORMATION
  Report Type: Spontaneous
  Country: CA (occurrence: CA)
  Receive Date: 20251224
  Receipt Date: 20251224
  Transmission Date: 20260118
  Serious: Yes (Other)
  Sender: AMGEN
  Company Number: CA-AMGEN-CANSP2025250222

PATIENT
  Sex: Female

DRUGS (2)
  1. REPATHA [Suspect]
     Active Substance: EVOLOCUMAB
     Indication: Product used for unknown indication
     Dosage: UNK
     Route: 065
     Dates: start: 202106
  2. CRESTOR [Concomitant]
     Active Substance: ROSUVASTATIN CALCIUM
     Dosage: UNK (40 MILLIGRAM (MG))
     Route: 065
     Dates: start: 202106

REACTIONS (3)
  - Vascular graft [Unknown]
  - Aortic valve replacement [Unknown]
  - Lipoprotein (a) increased [Unknown]

NARRATIVE: CASE EVENT DATE: 20230101
